FAERS Safety Report 8047460-5 (Version None)
Quarter: 2012Q1

REPORT INFORMATION
  Report Type: 
  Country: None (occurrence: None)
  Receive Date: 20120116
  Receipt Date: 20120109
  Transmission Date: 20120608
  Serious: Yes (Other)
  Sender: FDA-Public Use
  Company Number: FR-UCBSA-042293

PATIENT
  Age: 38 Year
  Sex: Male

DRUGS (2)
  1. KEPPRA [Suspect]
     Indication: EPILEPSY
     Dosage: TOTAL DAILY DOSE: 1 G
     Route: 048
     Dates: start: 20100601, end: 20110501
  2. NONE [Concomitant]

REACTIONS (1)
  - COGNITIVE DISORDER [None]
